FAERS Safety Report 5857411-7 (Version None)
Quarter: 2008Q3

REPORT INFORMATION
  Report Type: 
  Country: None (occurrence: None)
  Receive Date: 20080826
  Receipt Date: 20080815
  Transmission Date: 20090109
  Serious: Yes (Death, Hospitalization)
  Sender: FDA-Public Use
  Company Number: DE-WYE-G01720208

PATIENT
  Sex: Male

DRUGS (4)
  1. TORISEL [Suspect]
     Indication: METASTATIC RENAL CELL CARCINOMA
     Route: 042
     Dates: start: 20080411, end: 20080411
  2. TORISEL [Suspect]
     Route: 042
     Dates: start: 20080425, end: 20080425
  3. TORISEL [Suspect]
     Route: 042
     Dates: start: 20080509, end: 20080516
  4. PALLADONE [Concomitant]
     Indication: PAIN
     Route: 048

REACTIONS (9)
  - ANAEMIA [None]
  - ASCITES [None]
  - AUTOIMMUNE THROMBOCYTOPENIA [None]
  - C-REACTIVE PROTEIN INCREASED [None]
  - CONDITION AGGRAVATED [None]
  - GENERAL PHYSICAL HEALTH DETERIORATION [None]
  - NEOPLASM PROGRESSION [None]
  - PAIN [None]
  - THROMBOCYTOPENIA [None]
